FAERS Safety Report 25100507 (Version 2)
Quarter: 2025Q1

REPORT INFORMATION
  Report Type: Report from Study
  Country: US (occurrence: US)
  Receive Date: 20250320
  Receipt Date: 20250326
  Transmission Date: 20250409
  Serious: Yes (Hospitalization)
  Sender: EISAI
  Company Number: US-Eisai-EC-2025-186026

PATIENT
  Age: 81 Year
  Sex: Male
  Weight: 80.73 kg

DRUGS (17)
  1. LENVIMA [Suspect]
     Active Substance: LENVATINIB
     Indication: Renal cancer
     Dates: start: 20241024, end: 2025
  2. LUTEIN [Concomitant]
     Active Substance: LUTEIN
  3. LATANOPROST [Concomitant]
     Active Substance: LATANOPROST
  4. TYLENOL [Concomitant]
     Active Substance: ACETAMINOPHEN
  5. ONDANSETRON [Concomitant]
     Active Substance: ONDANSETRON
  6. TRAMADOL [Concomitant]
     Active Substance: TRAMADOL
  7. LOSARTAN [Concomitant]
     Active Substance: LOSARTAN
  8. EVEROLIMUS [Concomitant]
     Active Substance: EVEROLIMUS
  9. OMEPRAZOLE [Concomitant]
     Active Substance: OMEPRAZOLE
  10. VITAMIN B12 [Concomitant]
     Active Substance: CYANOCOBALAMIN
  11. VITAMIN C [Concomitant]
     Active Substance: ASCORBIC ACID
  12. UNSPECIFIED INGREDIENT [Concomitant]
     Active Substance: UNSPECIFIED INGREDIENT
  13. CALCIUM\VITAMIN D [Concomitant]
     Active Substance: CALCIUM\VITAMIN D
  14. ELIQUIS [Concomitant]
     Active Substance: APIXABAN
  15. FISH OIL [Concomitant]
     Active Substance: FISH OIL
  16. HYDROCHLOROTHIAZIDE [Concomitant]
     Active Substance: HYDROCHLOROTHIAZIDE
  17. HYDROCORTISONE [Concomitant]
     Active Substance: HYDROCORTISONE

REACTIONS (2)
  - Dehydration [Recovering/Resolving]
  - Blood potassium decreased [Recovering/Resolving]

NARRATIVE: CASE EVENT DATE: 20250101
